FAERS Safety Report 10418951 (Version 1)
Quarter: 2014Q2

REPORT INFORMATION
  Report Type: Spontaneous
  Country: US (occurrence: None)
  Receive Date: 20140617
  Receipt Date: 20140617
  Transmission Date: 20141212
  Serious: Yes (Other)
  Sender: FDA-Public Use
  Company Number: USW201305-000051

PATIENT
  Sex: Male
  Weight: 86.18 kg

DRUGS (7)
  1. APOKYN [Suspect]
     Indication: PARKINSON^S DISEASE
     Route: 058
  2. STALEVO (CARBIDOPA, LEVODOPA, AND ENTACOPONE) [Concomitant]
  3. SINEMAT ER (CARIDOPA-LEVODOPA) [Concomitant]
  4. REQUIP (ROPINIROLE) [Concomitant]
  5. LYRICA (PREGABALIN) [Concomitant]
  6. CYMBALTA (DULOXETINE) [Concomitant]
  7. LOSARTAN [Concomitant]

REACTIONS (2)
  - Hallucination [None]
  - Aggression [None]
